FAERS Safety Report 8485623-5 (Version None)
Quarter: 2012Q3

REPORT INFORMATION
  Report Type: 
  Country: None (occurrence: None)
  Receive Date: 20120703
  Receipt Date: 20120628
  Transmission Date: 20120928
  Serious: Yes (Other)
  Sender: FDA-Public Use
  Company Number: JP-PFIZER INC-2012156175

PATIENT
  Age: 70 Year
  Sex: Female

DRUGS (4)
  1. LYRICA [Suspect]
     Indication: POST HERPETIC NEURALGIA
     Dosage: 75 MG DAILY
  2. LYRICA [Suspect]
     Dosage: 150 MG DAILY
  3. LYRICA [Suspect]
     Dosage: 175 MG DAILY
  4. LYRICA [Suspect]
     Dosage: 200 MG DAILY

REACTIONS (2)
  - SOMNOLENCE [None]
  - PNEUMONIA ASPIRATION [None]
